FAERS Safety Report 17106040 (Version 1)
Quarter: 2019Q4

REPORT INFORMATION
  Report Type: Spontaneous
  Country: FR (occurrence: FR)
  Receive Date: 20191203
  Receipt Date: 20191203
  Transmission Date: 20200122
  Serious: Yes (Hospitalization)
  Sender: FDA-Public Use
  Company Number: FR-MYLANLABS-2019M1116751

PATIENT
  Age: 69 Year
  Sex: Female
  Weight: 53 kg

DRUGS (6)
  1. ACUPAN [Concomitant]
     Active Substance: NEFOPAM HYDROCHLORIDE
     Dosage: UNK
  2. PRAZEPAM [Concomitant]
     Active Substance: PRAZEPAM
     Dosage: 15 MILLIGRAM, QD
     Route: 048
  3. CARBOPLATIN. [Suspect]
     Active Substance: CARBOPLATIN
     Indication: PANCREATIC CARCINOMA
     Dosage: 383 MILLIGRAM, TOTAL (C1)
     Route: 041
     Dates: start: 20190515, end: 20190515
  4. IMOVANE [Concomitant]
     Active Substance: ZOPICLONE
     Dosage: 7.5 MILLIGRAM, QD
     Route: 048
  5. VEPESIDE [Suspect]
     Active Substance: ETOPOSIDE
     Indication: PANCREATIC CARCINOMA
     Dosage: C1 153 MG/JOUR PENDANT 3 JOURS
     Route: 041
     Dates: start: 20190515, end: 20190517
  6. SPASFON                            /00765801/ [Concomitant]
     Active Substance: PHLOROGLUCINOL\1,3,5-TRIMETHOXYBENZENE
     Dosage: UNK
     Route: 048

REACTIONS (2)
  - Chronic kidney disease [Recovered/Resolved]
  - Febrile bone marrow aplasia [Recovered/Resolved]

NARRATIVE: CASE EVENT DATE: 20190524
